FAERS Safety Report 15227131 (Version 1)
Quarter: 2018Q3

REPORT INFORMATION
  Report Type: Spontaneous
  Country: PL (occurrence: PL)
  Receive Date: 20180801
  Receipt Date: 20180801
  Transmission Date: 20181010
  Serious: Yes (Life-Threatening)
  Sender: FDA-Public Use
  Company Number: PL-PFIZER INC-2018306913

PATIENT
  Age: 60 Year

DRUGS (3)
  1. VANCOMYCIN [Suspect]
     Active Substance: VANCOMYCIN
  2. CEFTRIAXONE SODIUM. [Suspect]
     Active Substance: CEFTRIAXONE SODIUM
  3. MEROPENEM. [Suspect]
     Active Substance: MEROPENEM

REACTIONS (3)
  - Seizure [Unknown]
  - Depressed level of consciousness [Unknown]
  - Inflammation [Unknown]
